FAERS Safety Report 5030816-2 (Version None)
Quarter: 2006Q2

REPORT INFORMATION
  Report Type: 
  Country: None (occurrence: None)
  Receive Date: 20060621
  Receipt Date: 20060529
  Transmission Date: 20061013
  Serious: Yes (Life-Threatening, Hospitalization, Other)
  Sender: FDA-Public Use
  Company Number: PHBS2006JP08136

PATIENT
  Age: 76 Year
  Sex: Female

DRUGS (4)
  1. LAMISIL [Suspect]
     Indication: NAIL TINEA
     Dosage: 125 MG/D
     Route: 048
     Dates: start: 20060224, end: 20060527
  2. ASPIRIN [Concomitant]
     Indication: ANGINA PECTORIS
     Dosage: 100 MG/DAY
     Route: 048
     Dates: start: 20040911, end: 20060527
  3. MYONAL [Concomitant]
     Indication: PERIARTHRITIS
     Dosage: 100 MG/D
     Route: 048
     Dates: start: 20041016, end: 20060527
  4. OMEPRAL [Suspect]
     Indication: REFLUX OESOPHAGITIS
     Dosage: 10 MG/D
     Route: 048
     Dates: start: 20051129, end: 20060527

REACTIONS (12)
  - ANAEMIA [None]
  - ANOREXIA [None]
  - BLOOD DISORDER [None]
  - DISEASE PROGRESSION [None]
  - FATIGUE [None]
  - HAEMATOCRIT DECREASED [None]
  - HAEMOGLOBIN DECREASED [None]
  - MALAISE [None]
  - NAIL TINEA [None]
  - NEUTROPHIL PERCENTAGE DECREASED [None]
  - RED BLOOD CELL COUNT DECREASED [None]
  - WHITE BLOOD CELL COUNT DECREASED [None]
